FAERS Safety Report 23751053 (Version 1)
Quarter: 2024Q2

REPORT INFORMATION
  Report Type: Spontaneous
  Country: IN (occurrence: None)
  Receive Date: 20240417
  Receipt Date: 20240417
  Transmission Date: 20240716
  Serious: Yes (Hospitalization, Other)
  Sender: FDA-Public Use
  Company Number: IN-Unichem Pharmaceuticals (USA) Inc-UCM202404-000380

PATIENT
  Sex: Female

DRUGS (19)
  1. TOPIRAMATE [Suspect]
     Active Substance: TOPIRAMATE
     Indication: Migraine
     Dates: start: 202206
  2. TOPIRAMATE [Suspect]
     Active Substance: TOPIRAMATE
     Dates: start: 202208
  3. DIVALPROEX SODIUM [Suspect]
     Active Substance: DIVALPROEX SODIUM
     Indication: Migraine
     Dates: start: 202301
  4. AMITRIPTYLINE HYDROCHLORIDE [Suspect]
     Active Substance: AMITRIPTYLINE HYDROCHLORIDE
     Indication: Migraine
     Dates: start: 202201
  5. AMITRIPTYLINE HYDROCHLORIDE [Suspect]
     Active Substance: AMITRIPTYLINE HYDROCHLORIDE
     Dates: start: 202301
  6. RIZATRIPTAN [Suspect]
     Active Substance: RIZATRIPTAN
     Indication: Migraine
     Dates: start: 202208
  7. ACETAMINOPHEN\TRAMADOL [Suspect]
     Active Substance: ACETAMINOPHEN\TRAMADOL
     Indication: Migraine
     Dosage: 50-100 MG
     Dates: start: 202208
  8. NAPROXEN SODIUM\SUMATRIPTAN SUCCINATE [Suspect]
     Active Substance: NAPROXEN SODIUM\SUMATRIPTAN SUCCINATE
     Indication: Migraine
     Dosage: 85/500 MG
     Dates: start: 202208
  9. ERGOTAMINE [Suspect]
     Active Substance: CAFFEINE\ERGOTAMINE\ERGOTAMINE TARTRATE
     Indication: Migraine
     Dates: start: 202208
  10. PREDNISOLONE [Suspect]
     Active Substance: PREDNISOLONE
     Indication: Migraine
     Dosage: UNKNOWN
  11. CAFFEINE [Concomitant]
     Active Substance: CAFFEINE
     Indication: Migraine
     Dosage: UNKNOWN
  12. PROCHLORPERAZINE [Concomitant]
     Active Substance: PROCHLORPERAZINE
     Indication: Migraine
     Dosage: UNKNOWN
     Dates: start: 202208
  13. FLUNARIZINE [Concomitant]
     Active Substance: FLUNARIZINE
     Indication: Migraine
     Dates: start: 202101
  14. FLUNARIZINE [Concomitant]
     Active Substance: FLUNARIZINE
     Dates: start: 202206
  15. PROPRANOLOL [Concomitant]
     Active Substance: PROPRANOLOL HYDROCHLORIDE
     Indication: Migraine
     Dates: start: 202101
  16. PROPRANOLOL [Concomitant]
     Active Substance: PROPRANOLOL HYDROCHLORIDE
     Dates: start: 202201
  17. PROPRANOLOL [Concomitant]
     Active Substance: PROPRANOLOL HYDROCHLORIDE
     Dates: start: 202208
  18. IBUPROFEN [Concomitant]
     Active Substance: IBUPROFEN
     Indication: Migraine
     Dates: start: 202101
  19. DICLOFENAC [Concomitant]
     Active Substance: DICLOFENAC
     Indication: Migraine
     Dates: start: 202101

REACTIONS (3)
  - Serotonin syndrome [Recovered/Resolved]
  - Medication overuse headache [Recovered/Resolved]
  - Drug ineffective for unapproved indication [Unknown]
